FAERS Safety Report 24055174 (Version 2)
Quarter: 2025Q1

REPORT INFORMATION
  Report Type: Spontaneous
  Country: IE (occurrence: IE)
  Receive Date: 20240705
  Receipt Date: 20250310
  Transmission Date: 20250409
  Serious: Yes (Death)
  Sender: ROCHE
  Company Number: IE-ROCHE-10000016625

PATIENT

DRUGS (5)
  1. OBINUTUZUMAB [Suspect]
     Active Substance: OBINUTUZUMAB
     Indication: Diffuse large B-cell lymphoma refractory
     Route: 065
  2. COLUMVI [Suspect]
     Active Substance: GLOFITAMAB-GXBM
     Indication: Diffuse large B-cell lymphoma refractory
     Dosage: 10MG ONCE A DAY FOR TREATMENT CYCLE 1
     Route: 065
     Dates: start: 20231212
  3. COLUMVI [Suspect]
     Active Substance: GLOFITAMAB-GXBM
     Dosage: 10MG ONCE A DAY FOR TREATMENT CYCLE 1
     Route: 065
     Dates: start: 20231219
  4. COLUMVI [Suspect]
     Active Substance: GLOFITAMAB-GXBM
     Dosage: 10MG ONCE A DAY FOR TREATMENT CYCLE 1
     Route: 065
     Dates: start: 20231229
  5. COLUMVI [Suspect]
     Active Substance: GLOFITAMAB-GXBM
     Dosage: 10MG ONCE A DAY FOR TREATMENT CYCLE 1
     Route: 065
     Dates: start: 20240119

REACTIONS (1)
  - Death [Fatal]
